FAERS Safety Report 4372408-4 (Version None)
Quarter: 2004Q2

REPORT INFORMATION
  Report Type: 
  Country: None (occurrence: None)
  Receive Date: 20040602
  Receipt Date: 20040517
  Transmission Date: 20050107
  Serious: Yes (Hospitalization)
  Sender: FDA-Public Use
  Company Number: 2004AP02740

PATIENT
  Age: 73 Year
  Sex: Male
  Weight: 79.6 kg

DRUGS (11)
  1. MEROPEN [Suspect]
     Indication: EPIDIDYMITIS
     Dosage: 500 MG ONCE IV
     Route: 042
     Dates: start: 20031129, end: 20031129
  2. MEROPEN [Suspect]
     Indication: EPIDIDYMITIS
     Dosage: 1000 MG BID IV
     Route: 042
     Dates: start: 20031130, end: 20031204
  3. CRAVIT [Suspect]
     Indication: EPIDIDYMITIS
     Dosage: 100 MG TID PO
     Route: 048
     Dates: start: 20031117, end: 20031121
  4. FLOMOX [Concomitant]
     Indication: EPIDIDYMITIS
     Dosage: 300 MG TID PO
     Route: 048
     Dates: start: 20031122, end: 20031126
  5. ROCEPHIN [Suspect]
     Indication: EPIDIDYMITIS
     Dosage: 1000 MG ONCE IV
     Route: 042
     Dates: start: 20031122, end: 20031122
  6. ROCEPHIN [Suspect]
     Indication: EPIDIDYMITIS
     Dosage: 1000 MG ONCE IV
     Route: 042
     Dates: start: 20031127, end: 20031129
  7. ZANTAC [Concomitant]
  8. PRIMPERAN INJ [Concomitant]
  9. LOXONIN [Concomitant]
  10. LASIX [Concomitant]
  11. HERBESSER ^TANABE^ [Concomitant]

REACTIONS (6)
  - ABDOMINAL DISTENSION [None]
  - ANOREXIA [None]
  - C-REACTIVE PROTEIN INCREASED [None]
  - DRUG INTERACTION [None]
  - PYREXIA [None]
  - WHITE BLOOD CELL COUNT INCREASED [None]
